FAERS Safety Report 7491761-6 (Version None)
Quarter: 2011Q2

REPORT INFORMATION
  Report Type: 
  Country: None (occurrence: None)
  Receive Date: 20110518
  Receipt Date: 20110518
  Transmission Date: 20111010
  Serious: Yes (Other)
  Sender: FDA-Public Use
  Company Number: None

PATIENT
  Age: 34 Year
  Sex: Female
  Weight: 63.5036 kg

DRUGS (4)
  1. SPIRONOLACTONE [Concomitant]
  2. ORTHO CYCLEN-28 [Concomitant]
  3. HYDROGEN PEROXIDE SOLUTION [Suspect]
     Indication: DENTAL COSMETIC PROCEDURE
     Dosage: TOPICAL
     Route: 061
     Dates: start: 20110424
  4. LEXAPRO [Concomitant]

REACTIONS (3)
  - APHAGIA [None]
  - GINGIVAL ERYTHEMA [None]
  - GINGIVAL BLISTER [None]
